FAERS Safety Report 9631216 (Version 1)
Quarter: 2013Q4

REPORT INFORMATION
  Report Type: Spontaneous
  Country: AU (occurrence: None)
  Receive Date: 20131015
  Receipt Date: 20131015
  Transmission Date: 20140711
  Serious: Yes (Other)
  Sender: FDA-Public Use
  Company Number: 2013AU00698

PATIENT
  Age: 26 Year
  Sex: Female

DRUGS (1)
  1. SERTRALINE [Suspect]
     Indication: DEPRESSION

REACTIONS (7)
  - Hepatocellular injury [None]
  - Exposure during pregnancy [None]
  - Malaise [None]
  - Transaminases increased [None]
  - Nausea [None]
  - Vomiting [None]
  - Chromaturia [None]
